FAERS Safety Report 8977884 (Version 1)
Quarter: 2012Q4

REPORT INFORMATION
  Report Type: 
  Country: GB (occurrence: GB)
  Receive Date: 20121219
  Receipt Date: 20121219
  Transmission Date: 20130627
  Serious: Yes (Hospitalization)
  Sender: FDA-Public Use
  Company Number: GB-ASTRAZENECA-2012SE92495

PATIENT
  Age: 13879 Day
  Sex: Male

DRUGS (4)
  1. SEROQUEL XL [Suspect]
     Route: 048
  2. SODIUM VALPROATE [Concomitant]
  3. LUSTRAL [Concomitant]
  4. ANOTHER SHORT ACTING ANTI-PSYCHOTIC [Concomitant]

REACTIONS (4)
  - Gastrointestinal infection [Recovered/Resolved]
  - Psychotic disorder [Recovered/Resolved]
  - Mental impairment [Recovered/Resolved]
  - Drug dose omission [Unknown]
